FAERS Safety Report 4471789-0 (Version None)
Quarter: 2004Q4

REPORT INFORMATION
  Report Type: 
  Country: None (occurrence: None)
  Receive Date: 20041007
  Receipt Date: 20040927
  Transmission Date: 20050328
  Serious: Yes (Life-Threatening)
  Sender: FDA-Public Use
  Company Number: 2004235603JP

PATIENT
  Age: 30 Year
  Sex: Male

DRUGS (1)
  1. CAMPTOSAR [Suspect]
     Indication: TESTIS CANCER
     Dosage: SEE IMAGE, IV
     Route: 042

REACTIONS (2)
  - BONE MARROW DEPRESSION [None]
  - DIARRHOEA [None]
